FAERS Safety Report 20067074 (Version 2)
Quarter: 2021Q4

REPORT INFORMATION
  Report Type: Spontaneous
  Country: US (occurrence: US)
  Receive Date: 20211115
  Receipt Date: 20211115
  Transmission Date: 20220303
  Serious: No
  Sender: FDA-Public Use
  Company Number: US-BRISTOL-MYERS SQUIBB COMPANY-BMS-2021-121243

PATIENT
  Age: 62 Year
  Sex: Female

DRUGS (1)
  1. ORENCIA [Suspect]
     Active Substance: ABATACEPT
     Indication: Felty^s syndrome
     Dosage: 125 MG/ML, QWK
     Route: 058
     Dates: start: 20181101

REACTIONS (2)
  - Sinusitis [Recovering/Resolving]
  - Intentional product use issue [Unknown]
